FAERS Safety Report 4741617-4 (Version None)
Quarter: 2005Q3

REPORT INFORMATION
  Report Type: 
  Country: None (occurrence: None)
  Receive Date: 20050808
  Receipt Date: 20050725
  Transmission Date: 20060218
  Serious: Yes (Other)
  Sender: FDA-Public Use
  Company Number: FR_050706879

PATIENT
  Age: 50 Year
  Sex: Female

DRUGS (4)
  1. GEMZAR [Suspect]
     Indication: NON-SMALL CELL LUNG CANCER
     Dosage: 1250 MG/M2/2 OTHER
     Route: 050
     Dates: start: 20040401
  2. CARBOPLATIN [Concomitant]
  3. ZOMETA [Concomitant]
  4. INNOHEP [Concomitant]

REACTIONS (7)
  - ANGIONEUROTIC OEDEMA [None]
  - FACE OEDEMA [None]
  - FEAR [None]
  - REFUSAL OF TREATMENT BY PATIENT [None]
  - RESPIRATORY DISORDER [None]
  - SUPERIOR VENA CAVAL OCCLUSION [None]
  - THROMBOCYTOPENIA [None]
